FAERS Safety Report 4359969-6 (Version None)
Quarter: 2004Q2

REPORT INFORMATION
  Report Type: 
  Country: None (occurrence: None)
  Receive Date: 20040513
  Receipt Date: 20040504
  Transmission Date: 20050107
  Serious: Yes (Other)
  Sender: FDA-Public Use
  Company Number: HQ4170611SEP2002

PATIENT
  Age: 50 Year
  Sex: Male
  Weight: 88.53 kg

DRUGS (9)
  1. DIMETAPP [Suspect]
     Indication: NASOPHARYNGITIS
     Dosage: ORAL
     Route: 048
  2. ALKA-SELTZER PLUS (ACETYLSALICYLIC ACID/CHLORPHENAMINE MALEATE/PHENYLP [Suspect]
  3. CHLOR-TRIMETON [Suspect]
  4. CONTAC [Suspect]
  5. CORICIDIN [Suspect]
  6. ROBITUSSIN CF (GUAIFENESIN/DEXTROMETHORPHAN/PHENYLPROPANOLAMINE, SYRUP [Suspect]
  7. SINE-OFF (ACETYLSALICYLIC ACID/CHLORPHENAMINE MALEATE/PHENYLPROPANOLAM [Suspect]
  8. SINUTAB (PARACETAMOL/PHENACETIN/PHENYLPROPANOLAMINE HYDROCHLORIDE/PHEN [Suspect]
  9. UNKNOWN (UNKNOWN,) [Suspect]

REACTIONS (3)
  - INJURY [None]
  - MYOCARDIAL INFARCTION [None]
  - NERVOUS SYSTEM DISORDER [None]
